FAERS Safety Report 8967682 (Version 1)
Quarter: 2012Q4

REPORT INFORMATION
  Report Type: Spontaneous
  Country: IR (occurrence: None)
  Receive Date: 20121207
  Receipt Date: 20121207
  Transmission Date: 20130627
  Serious: Yes (Hospitalization, Other)
  Sender: FDA-Public Use
  Company Number: 2012-19348

PATIENT
  Sex: Female
  Weight: 3 kg

DRUGS (1)
  1. TRAMADOL HYDROCHLORIDE [Suspect]
     Indication: FOETAL EXPOSURE DURING PREGNANCY
     Route: 064

REACTIONS (10)
  - Feeding disorder neonatal [None]
  - Grand mal convulsion [None]
  - Myoclonus [None]
  - Drug withdrawal syndrome neonatal [None]
  - Foetal exposure during pregnancy [None]
  - Hypertonia [None]
  - Nausea [None]
  - Vomiting [None]
  - Tremor [None]
  - Agitation [None]
